FAERS Safety Report 10214047 (Version 1)
Quarter: 2014Q2

REPORT INFORMATION
  Report Type: Spontaneous
  Country: PE (occurrence: PE)
  Receive Date: 20140603
  Receipt Date: 20140603
  Transmission Date: 20141212
  Serious: Yes (Other)
  Sender: FDA-Public Use
  Company Number: PE-PFIZER INC-2014149125

PATIENT
  Age: 29 Year
  Sex: Female
  Weight: 36 kg

DRUGS (1)
  1. LYRICA [Suspect]
     Dosage: 75 MG, 2X/DAY
     Route: 048

REACTIONS (5)
  - Hepatitis [Unknown]
  - Yellow skin [Unknown]
  - Nasopharyngitis [Unknown]
  - Nausea [Unknown]
  - Malaise [Unknown]
